FAERS Safety Report 4992445-6 (Version None)
Quarter: 2006Q2

REPORT INFORMATION
  Report Type: 
  Country: None (occurrence: None)
  Receive Date: 20060502
  Receipt Date: 20060421
  Transmission Date: 20061013
  Serious: Yes (Hospitalization, Other)
  Sender: FDA-Public Use
  Company Number: 2006055703

PATIENT
  Age: 6 Year
  Sex: Male
  Weight: 20.4119 kg

DRUGS (4)
  1. ZOLOFT [Suspect]
     Indication: ILL-DEFINED DISORDER
     Dosage: (50 MG), ORAL
     Route: 048
     Dates: start: 20020829
  2. ADDERALL XR (AMFETAMINE ASPARTATE, AMFETAMINE SULFATE, DEXAMFETAMINE S [Concomitant]
  3. ZYPREXA [Concomitant]
  4. MONTELUKAST SODIUM (MONTELUKAST SODIUM) [Concomitant]

REACTIONS (6)
  - ANGER [None]
  - CONFUSIONAL STATE [None]
  - HEAD INJURY [None]
  - INSOMNIA [None]
  - SELF INJURIOUS BEHAVIOUR [None]
  - SUICIDAL IDEATION [None]
